FAERS Safety Report 5039562-2 (Version None)
Quarter: 2006Q2

REPORT INFORMATION
  Report Type: 
  Country: None (occurrence: None)
  Receive Date: 20060629
  Receipt Date: 20060616
  Transmission Date: 20061013
  Serious: Yes (Hospitalization)
  Sender: FDA-Public Use
  Company Number: FR-BOEHRINGER INGELHEIM PHARMACEUTICALS, INC.-2006-FF-00482FF

PATIENT
  Age: 38 Year
  Sex: Male
  Weight: 71 kg

DRUGS (6)
  1. MICARDIS [Suspect]
     Indication: HYPERTENSION
     Route: 048
  2. SANMIGRAN [Concomitant]
  3. TEGRETOL [Concomitant]
  4. SINGULAIR [Concomitant]
  5. KEPPRA [Concomitant]
  6. DEPAKENE [Concomitant]
     Route: 048

REACTIONS (5)
  - PRURITUS [None]
  - RASH ERYTHEMATOUS [None]
  - RASH VESICULAR [None]
  - SKIN EXFOLIATION [None]
  - TOXIC SKIN ERUPTION [None]
